FAERS Safety Report 4325830-6 (Version None)
Quarter: 2004Q1

REPORT INFORMATION
  Report Type: 
  Country: None (occurrence: None)
  Receive Date: 20040329
  Receipt Date: 20040324
  Transmission Date: 20041129
  Serious: Yes (Life-Threatening, Hospitalization, Other)
  Sender: FDA-Public Use
  Company Number: PHRM2004FR01326

PATIENT
  Age: 19 Year
  Sex: Male
  Weight: 55 kg

DRUGS (4)
  1. TEGRETOL [Suspect]
     Route: 048
     Dates: start: 20020115
  2. TOPIRAMATE [Concomitant]
     Dosage: 100 MG/DAY
     Route: 048
     Dates: start: 20030715
  3. TOPIRAMATE [Concomitant]
     Dosage: 75 MG/DAY
     Route: 048
     Dates: start: 20020101, end: 20030714
  4. PLANT ALKALOIDS AND OTHER NATURAL PRODUCTS [Concomitant]

REACTIONS (23)
  - ANAEMIA [None]
  - ANTINUCLEAR ANTIBODY POSITIVE [None]
  - APHTHOUS STOMATITIS [None]
  - ARTHRALGIA [None]
  - C-REACTIVE PROTEIN INCREASED [None]
  - COLITIS [None]
  - COMPLEMENT FACTOR DECREASED [None]
  - CYTOMEGALOVIRUS ANTIBODY POSITIVE [None]
  - DNA ANTIBODY POSITIVE [None]
  - GENERAL PHYSICAL HEALTH DETERIORATION [None]
  - HAEMOGLOBIN DECREASED [None]
  - INFLAMMATION [None]
  - LUPUS-LIKE SYNDROME [None]
  - LYMPHADENOPATHY [None]
  - LYMPHOPENIA [None]
  - MUSCLE ATROPHY [None]
  - PYREXIA [None]
  - RASH [None]
  - RASH PRURITIC [None]
  - SPLENOMEGALY [None]
  - SYSTEMIC LUPUS ERYTHEMATOSUS [None]
  - SYSTEMIC LUPUS ERYTHEMATOSUS RASH [None]
  - WEIGHT DECREASED [None]
